FAERS Safety Report 13009019 (Version 1)
Quarter: 2016Q4

REPORT INFORMATION
  Report Type: Spontaneous
  Country: JP (occurrence: JP)
  Receive Date: 20161208
  Receipt Date: 20161208
  Transmission Date: 20170207
  Serious: Yes (Other)
  Sender: FDA-Public Use
  Company Number: JP-009507513-1612JPN001658

PATIENT
  Age: 62 Year
  Sex: Male

DRUGS (1)
  1. BRIDION [Suspect]
     Active Substance: SUGAMMADEX
     Dosage: UNK
     Route: 042
     Dates: start: 201505, end: 201505

REACTIONS (2)
  - Hypoxic-ischaemic encephalopathy [Unknown]
  - Anaphylactic shock [Unknown]
